FAERS Safety Report 7999310-0 (Version None)
Quarter: 2011Q4

REPORT INFORMATION
  Report Type: 
  Country: None (occurrence: None)
  Receive Date: 20111221
  Receipt Date: 20111212
  Transmission Date: 20120403
  Serious: Yes (Hospitalization)
  Sender: FDA-Public Use
  Company Number: CN-MPIJNJ-2011-06358

PATIENT

DRUGS (1)
  1. VELCADE [Suspect]
     Indication: MULTIPLE MYELOMA
     Dosage: 2 MG, CYCLIC
     Route: 042
     Dates: end: 20111121

REACTIONS (5)
  - RASH PUSTULAR [None]
  - LUNG INFECTION [None]
  - PYREXIA [None]
  - PLEURAL EFFUSION [None]
  - SKIN ULCER [None]
